FAERS Safety Report 5474177-3 (Version None)
Quarter: 2007Q3

REPORT INFORMATION
  Report Type: 
  Country: None (occurrence: None)
  Receive Date: 20070928
  Receipt Date: 20070920
  Transmission Date: 20080115
  Serious: Yes (Other)
  Sender: FDA-Public Use
  Company Number: 2007331397

PATIENT

DRUGS (1)
  1. LISTERINE MOUTHWASH ADVANCED ARCTIC MINT (MENTHOL, MENTHYL SALICYLATE, [Suspect]
     Indication: ALCOHOL POISONING
     Dosage: ONE BOTTLE DAILY, 500 ML, ORAL
     Route: 048
     Dates: start: 20060101

REACTIONS (1)
  - INTENTIONAL DRUG MISUSE [None]
